FAERS Safety Report 17967405 (Version 2)
Quarter: 2020Q3

REPORT INFORMATION
  Report Type: Spontaneous
  Country: PT (occurrence: PT)
  Receive Date: 20200701
  Receipt Date: 20200929
  Transmission Date: 20201103
  Serious: Yes (Other)
  Sender: FDA-Public Use
  Company Number: PT-TEVA-2020-PT-1792959

PATIENT
  Age: 75 Year
  Sex: Female

DRUGS (1)
  1. ANASTROZOL TEVA [Suspect]
     Active Substance: ANASTROZOLE
     Indication: BREAST CANCER
     Dosage: 1 MILLIGRAM DAILY;
     Route: 048
     Dates: start: 20200211

REACTIONS (4)
  - Dizziness [Unknown]
  - Vertigo [Unknown]
  - Headache [Unknown]
  - Balance disorder [Unknown]

NARRATIVE: CASE EVENT DATE: 20200512
